FAERS Safety Report 12265091 (Version 3)
Quarter: 2016Q2

REPORT INFORMATION
  Report Type: Report from Study
  Country: DE (occurrence: DE)
  Receive Date: 20160413
  Receipt Date: 20160506
  Transmission Date: 20160815
  Serious: Yes (Hospitalization, Other)
  Sender: FDA-Public Use
  Company Number: DE-INCYTE CORPORATION-2016IN001162

PATIENT
  Sex: Female

DRUGS (7)
  1. INCB018424 [Suspect]
     Active Substance: RUXOLITINIB
     Dosage: 20 MG, BID
     Route: 048
     Dates: start: 20141106, end: 20150104
  2. BELOC-ZOC MITE [Concomitant]
     Active Substance: METOPROLOL SUCCINATE
     Indication: ESSENTIAL HYPERTENSION
     Dosage: 0.5 DF, QD
     Route: 065
  3. ASPIRIN. [Concomitant]
     Active Substance: ASPIRIN
     Indication: PRODUCT USED FOR UNKNOWN INDICATION
     Dosage: 100 MG, QD
     Route: 065
  4. INCB018424 [Suspect]
     Active Substance: RUXOLITINIB
     Indication: MYELOFIBROSIS
     Dosage: 20 MG, BID
     Route: 048
     Dates: start: 20130821
  5. INCB018424 [Suspect]
     Active Substance: RUXOLITINIB
     Dosage: 15 MG, BID
     Route: 048
     Dates: start: 20150105, end: 20150219
  6. INCB018424 [Suspect]
     Active Substance: RUXOLITINIB
     Dosage: 15 MG, BID
     Route: 048
     Dates: start: 20140304, end: 20141105
  7. OMEP [Concomitant]
     Active Substance: OMEPRAZOLE
     Indication: PRODUCT USED FOR UNKNOWN INDICATION
     Dosage: 40 MG, QD
     Route: 065
     Dates: start: 20130824

REACTIONS (3)
  - Transplant rejection [Recovered/Resolved]
  - Hepatic enzyme increased [Unknown]
  - Graft versus host disease [Unknown]

NARRATIVE: CASE EVENT DATE: 20150803
